FAERS Safety Report 8163845-0 (Version None)
Quarter: 2012Q1

REPORT INFORMATION
  Report Type: 
  Country: None (occurrence: None)
  Receive Date: 20120224
  Receipt Date: 20120222
  Transmission Date: 20120608
  Serious: Yes (Death)
  Sender: FDA-Public Use
  Company Number: PHHY2012NL015134

PATIENT
  Sex: Male

DRUGS (2)
  1. ZOMETA [Suspect]
     Indication: PROSTATE CANCER METASTATIC
     Dosage: 4 MG/100ML, ONCE PER 28 DAYS
     Route: 042
     Dates: start: 20111114
  2. ZOMETA [Suspect]
     Dosage: 4 MG/100ML, ONCE PER 28 DAYS
     Route: 042
     Dates: start: 20120123

REACTIONS (1)
  - DEATH [None]
